FAERS Safety Report 6119647-X (Version None)
Quarter: 2009Q1

REPORT INFORMATION
  Report Type: 
  Country: None (occurrence: None)
  Receive Date: 20090311
  Receipt Date: 20090303
  Transmission Date: 20090719
  Serious: Yes (Hospitalization)
  Sender: FDA-Public Use
  Company Number: GXKR2009DE02693

PATIENT
  Age: 80 Year
  Sex: Female
  Weight: 95.7 kg

DRUGS (12)
  1. ALLOPURINOL [Suspect]
     Indication: HYPERURICAEMIA
     Dosage: 100 MG, QD, ORAL
     Route: 048
     Dates: end: 20081111
  2. IMURAN [Suspect]
     Indication: ARTERITIS
     Dosage: 50 MG, TID, ORAL
     Route: 048
     Dates: start: 20081014, end: 20081111
  3. LYRICA [Suspect]
     Indication: PAIN
     Dosage: 75 MG, QD, ORAL
     Route: 048
     Dates: start: 20081001
  4. BISOHEXAL (BISOPROLOL HEMIFUMARATE) [Concomitant]
  5. CALCILAC KT (CALCIUM CARBONATE, COLECALCIFEROL) [Concomitant]
  6. RAMIPRIL [Concomitant]
  7. FALITHROM HEXAL (PHENPROCOUMON) [Concomitant]
  8. PANTOPRAZOLE SODIUM [Concomitant]
  9. RESTEX (BENSERAZIDE HYDROCHLORIDE, LEVODOPA) [Concomitant]
  10. SIMVABETA (SIMVASTATIN) [Concomitant]
  11. URBASON /GFR/ (METHYLPREDNISOLONE) [Concomitant]
  12. XIPAMIDE (XIPAMIDE) [Concomitant]

REACTIONS (1)
  - PANCYTOPENIA [None]
